FAERS Safety Report 4845247-5 (Version None)
Quarter: 2005Q4

REPORT INFORMATION
  Report Type: 
  Country: None (occurrence: None)
  Receive Date: 20051125
  Receipt Date: 20051114
  Transmission Date: 20060501
  Serious: Yes (Disabling, Other)
  Sender: FDA-Public Use
  Company Number: 2005074300

PATIENT
  Age: 80 Year
  Sex: Female
  Weight: 92.9874 kg

DRUGS (2)
  1. DEPO-MEDROL [Suspect]
     Indication: SPINAL COLUMN STENOSIS
     Dosage: 120 MG (120 MG, 5 INJECTIONS), EPIDURAL
     Route: 008
     Dates: start: 20031201, end: 20041129
  2. BUPIVACAINE HCL [Suspect]
     Indication: SPINAL COLUMN STENOSIS
     Dosage: 50 CC (50 CC, 1 INJECTION), EPIDURAL
     Route: 008
     Dates: start: 20041129

REACTIONS (20)
  - BLOOD CORTISOL INCREASED [None]
  - BURNING SENSATION [None]
  - CENTRAL NERVOUS SYSTEM INFLAMMATION [None]
  - CONNECTIVE TISSUE DISORDER [None]
  - DIFFICULTY IN WALKING [None]
  - DRUG INEFFECTIVE [None]
  - DRUG PRESCRIBING ERROR [None]
  - FAECES DISCOLOURED [None]
  - FILARIASIS [None]
  - GANGRENE [None]
  - INJECTION SITE IRRITATION [None]
  - INJECTION SITE PAIN [None]
  - INSOMNIA [None]
  - JOINT SWELLING [None]
  - OEDEMA PERIPHERAL [None]
  - PAIN IN EXTREMITY [None]
  - POLYNEUROPATHY [None]
  - SENSATION OF HEAVINESS [None]
  - SKIN DISCOLOURATION [None]
  - VEIN DISORDER [None]
